FAERS Safety Report 8598468-2 (Version None)
Quarter: 2012Q3

REPORT INFORMATION
  Report Type: 
  Country: None (occurrence: None)
  Receive Date: 20120816
  Receipt Date: 20120808
  Transmission Date: 20120928
  Serious: Yes (Hospitalization)
  Sender: FDA-Public Use
  Company Number: PHHY2012DE011663

PATIENT
  Sex: Female
  Weight: 61.1 kg

DRUGS (14)
  1. ILARIS [Suspect]
     Dosage: 300 MG, 5 WEEKLY
     Route: 058
     Dates: start: 20111101, end: 20120206
  2. KINERET [Concomitant]
     Indication: CHRONIC INFANTILE NEUROLOGICAL CUTANEOUS AND ARTICULAR SYNDROME
     Dosage: 100 MG, QD
     Route: 058
     Dates: start: 20120201
  3. DIPIPERON [Concomitant]
     Indication: SLEEP DISORDER
     Dosage: 80 MG, QD
     Route: 048
     Dates: start: 20090101
  4. TRENTAL [Concomitant]
     Indication: SUDDEN HEARING LOSS
     Dosage: 800 MG, QD
     Route: 048
     Dates: start: 20090101
  5. LYRICA [Concomitant]
     Indication: PAIN
     Dosage: 25 MG, QD
     Route: 048
     Dates: start: 20100101
  6. BECLOMETASONE DIPROPIONATE W/FORMOTEROL FUMARATE [Concomitant]
     Indication: RESPIRATORY DISORDER
     Dosage: 200 UG, QMO
     Route: 048
     Dates: start: 20110101
  7. PERILAX [Concomitant]
     Indication: DEPRESSION
     Dosage: 100 MG, QD
     Route: 048
     Dates: start: 20110101
  8. PREDNISONE TAB [Concomitant]
     Indication: CHRONIC INFANTILE NEUROLOGICAL CUTANEOUS AND ARTICULAR SYNDROME
     Dosage: 2.5 MG, QD
     Route: 048
     Dates: start: 20110101
  9. PREDNISONE TAB [Concomitant]
  10. ILARIS [Suspect]
     Indication: CHRONIC INFANTILE NEUROLOGICAL CUTANEOUS AND ARTICULAR SYNDROME
     Dosage: 300 MG, FOR EVERY 8 WEEKS
     Route: 058
     Dates: start: 20100601
  11. ASPIRIN [Concomitant]
     Indication: DEPRESSION
     Dosage: 40 MG, QD
     Route: 048
     Dates: start: 20110101
  12. CORTICOSTEROIDS [Concomitant]
  13. INTERLEUKIN-1 [Concomitant]
  14. VENLAFAXINE [Concomitant]
     Indication: DEPRESSION
     Dosage: 150 MG, QD
     Route: 048
     Dates: start: 20100101

REACTIONS (4)
  - EPILEPSY [None]
  - POSTICTAL STATE [None]
  - MENINGITIS [None]
  - INTRACRANIAL PRESSURE INCREASED [None]
